FAERS Safety Report 18864789 (Version 1)
Quarter: 2021Q1

REPORT INFORMATION
  Report Type: Report from Study
  Country: JP (occurrence: JP)
  Receive Date: 20210208
  Receipt Date: 20210208
  Transmission Date: 20210420
  Serious: Yes (Hospitalization)
  Sender: FDA-Public Use
  Company Number: JP-HORIZON-2020HZN00034

PATIENT

DRUGS (6)
  1. BUPHENYL [Suspect]
     Active Substance: SODIUM PHENYLBUTYRATE
     Dosage: 16 DF (5.33 DF/ 8 HOURS)
     Route: 048
     Dates: start: 20180827
  2. BUPHENYL [Suspect]
     Active Substance: SODIUM PHENYLBUTYRATE
     Dosage: 12 DF (4 DF/ 8 HOURS)
     Route: 048
     Dates: start: 20180723, end: 20180826
  3. SODIUM BENZOATE [Concomitant]
     Active Substance: SODIUM BENZOATE
     Dosage: 80 ML,  80 ML/ DAY
     Route: 041
     Dates: start: 20191204, end: 20191205
  4. SODIUM BENZOATE [Concomitant]
     Active Substance: SODIUM BENZOATE
     Indication: ORNITHINE TRANSCARBAMOYLASE DEFICIENCY
     Dosage: 40 ML,  40 ML/ DAY
     Route: 041
     Dates: start: 20191203, end: 20191203
  5. BUPHENYL [Suspect]
     Active Substance: SODIUM PHENYLBUTYRATE
     Indication: ORNITHINE TRANSCARBAMOYLASE DEFICIENCY
     Dosage: 6 DF( 2 DF PER 8 HRS)
     Route: 048
     Dates: start: 20180625, end: 20180722
  6. SODIUM BENZOATE [Concomitant]
     Active Substance: SODIUM BENZOATE
     Indication: ORNITHINE TRANSCARBAMOYLASE DEFICIENCY
     Dosage: 11428 MG,  3809.3 MG/8 HOURS
     Route: 048

REACTIONS (1)
  - Epilepsy [Recovered/Resolved]

NARRATIVE: CASE EVENT DATE: 20191203
